FAERS Safety Report 11254549 (Version 1)
Quarter: 2015Q3

REPORT INFORMATION
  Report Type: Spontaneous
  Country: US (occurrence: None)
  Receive Date: 20150708
  Receipt Date: 20150708
  Transmission Date: 20151125
  Serious: No
  Sender: FDA-Public Use
  Company Number: None

PATIENT
  Age: 27 Year
  Sex: Female
  Weight: 108.41 kg

DRUGS (4)
  1. SKYLA [Suspect]
     Active Substance: LEVONORGESTREL
     Dates: start: 20150410, end: 20150420
  2. AZURETTE BIRTH CONTROL [Concomitant]
  3. PROAIR INHALER [Concomitant]
  4. B12 SHOTS [Concomitant]
     Active Substance: CYANOCOBALAMIN

REACTIONS (15)
  - Migraine [None]
  - Cyst [None]
  - Abdominal pain upper [None]
  - Vulvovaginal dryness [None]
  - Muscle spasms [None]
  - Hyperhidrosis [None]
  - Pain [None]
  - Abdominal distension [None]
  - Inflammation [None]
  - Depression [None]
  - Diarrhoea [None]
  - Nausea [None]
  - Chills [None]
  - Hot flush [None]
  - Acne [None]

NARRATIVE: CASE EVENT DATE: 20150410
